FAERS Safety Report 10100723 (Version 5)
Quarter: 2015Q2

REPORT INFORMATION
  Report Type: Report from Study
  Country: US (occurrence: US)
  Receive Date: 20140423
  Receipt Date: 20150417
  Transmission Date: 20150821
  Serious: Yes (Hospitalization, Other)
  Sender: FDA-Public Use
  Company Number: US-SANOFI-AVENTIS-2013SA081091

PATIENT
  Age: 64 Year
  Sex: Female

DRUGS (1)
  1. AUBAGIO [Suspect]
     Active Substance: TERIFLUNOMIDE
     Indication: MULTIPLE SCLEROSIS
     Route: 048
     Dates: start: 20130408

REACTIONS (17)
  - Condition aggravated [Not Recovered/Not Resolved]
  - Back disorder [Not Recovered/Not Resolved]
  - Urinary incontinence [Recovering/Resolving]
  - Pain in extremity [Unknown]
  - Rotator cuff repair [Unknown]
  - Pain [Unknown]
  - Constipation [Recovering/Resolving]
  - Dysstasia [Unknown]
  - Back pain [Unknown]
  - Activities of daily living impaired [Not Recovered/Not Resolved]
  - Sciatica [Unknown]
  - Somnolence [Unknown]
  - Sleep disorder [Unknown]
  - Muscular weakness [Unknown]
  - Muscular weakness [Not Recovered/Not Resolved]
  - Drug dose omission [Unknown]
  - Memory impairment [Unknown]

NARRATIVE: CASE EVENT DATE: 201502
